FAERS Safety Report 9046347 (Version 2)
Quarter: 2015Q1

REPORT INFORMATION
  Report Type: Report from Study
  Country: US (occurrence: US)
  Receive Date: 20130201
  Receipt Date: 20150112
  Transmission Date: 20150721
  Serious: Yes (Hospitalization, Other)
  Sender: FDA-Public Use
  Company Number: US-BRISTOL-MYERS SQUIBB COMPANY-17320094

PATIENT
  Age: 79 Year
  Sex: Male
  Weight: 48.5 kg

DRUGS (3)
  1. CISPLATIN. [Suspect]
     Active Substance: CISPLATIN
     Indication: LUNG NEOPLASM MALIGNANT
     Dosage: 75 MG/M2, QD
     Route: 042
     Dates: start: 20101215
  2. CIXUTUMUMAB [Suspect]
     Active Substance: CIXUTUMUMAB
     Indication: SMALL CELL LUNG CANCER
     Dosage: 6 MG/KG, QD
     Route: 042
     Dates: start: 20101215
  3. VEPESID [Suspect]
     Active Substance: ETOPOSIDE
     Indication: SMALL CELL LUNG CANCER
     Dosage: 100 MG/M2, QD
     Route: 042
     Dates: start: 20101215

REACTIONS (5)
  - Neutrophil count decreased [Recovered/Resolved]
  - Dehydration [Recovered/Resolved]
  - White blood cell count decreased [Recovered/Resolved]
  - Urinary tract infection [Recovered/Resolved]
  - Dyspnoea [Recovered/Resolved]

NARRATIVE: CASE EVENT DATE: 20110111
